FAERS Safety Report 5366502-9 (Version None)
Quarter: 2007Q2

REPORT INFORMATION
  Report Type: 
  Country: None (occurrence: None)
  Receive Date: 20070622
  Receipt Date: 20070611
  Transmission Date: 20071010
  Serious: Yes (Other)
  Sender: FDA-Public Use
  Company Number: FR-JNJFOC-20070604778

PATIENT
  Age: 73 Year
  Sex: Female

DRUGS (4)
  1. ACETAMINOPHEN AND TRAMADOL HCL [Suspect]
     Indication: NEURALGIA
     Dosage: (37.5 325 MG) ONE OR ONE-HALF TABLET
     Route: 048
  2. CHONDROSULF [Concomitant]
     Indication: OSTEOARTHRITIS
     Route: 048
  3. DUPHASTON [Concomitant]
     Route: 048
  4. HORMONES [Concomitant]
     Indication: HORMONE LEVEL ABNORMAL

REACTIONS (2)
  - EYE HAEMORRHAGE [None]
  - PLATELET AGGREGATION ABNORMAL [None]
